FAERS Safety Report 6215324-5 (Version None)
Quarter: 2009Q2

REPORT INFORMATION
  Report Type: 
  Country: None (occurrence: None)
  Receive Date: 20090604
  Receipt Date: 20090601
  Transmission Date: 20091009
  Serious: Yes (Death, Hospitalization, Other)
  Sender: FDA-Public Use
  Company Number: PHHY2009BR21377

PATIENT
  Sex: Female
  Weight: 40 kg

DRUGS (6)
  1. STALEVO 100 [Suspect]
     Indication: PARKINSON'S DISEASE
     Dosage: 100/25/200 MG, TWICE DAILY
     Route: 048
  2. SERTRALINE HYDROCHLORIDE [Concomitant]
     Dosage: 1 TAB BID
     Route: 048
  3. VITAMINS [Concomitant]
     Route: 048
  4. COLCHICINE [Concomitant]
     Indication: RENAL DISORDER
     Route: 048
  5. RIVOTRIL [Concomitant]
     Route: 048
  6. NOVALGINA [Concomitant]
     Dosage: 35 DROPS UP TO EVERY 6 HOURS
     Route: 048
     Dates: start: 20090120

REACTIONS (8)
  - ACUTE RESPIRATORY FAILURE [None]
  - CARDIAC FAILURE [None]
  - CHOKING [None]
  - DIARRHOEA [None]
  - DYSPHAGIA [None]
  - PNEUMONIA [None]
  - WEIGHT DECREASED [None]
  - WRONG TECHNIQUE IN DRUG USAGE PROCESS [None]
